FAERS Safety Report 11863016 (Version 2)
Quarter: 2016Q2

REPORT INFORMATION
  Report Type: Spontaneous
  Country: US (occurrence: US)
  Receive Date: 20151223
  Receipt Date: 20160602
  Transmission Date: 20160815
  Serious: Yes (Hospitalization, Other)
  Sender: FDA-Public Use
  Company Number: US-AMGEN-USASP2015137017

PATIENT
  Age: 55 Year
  Sex: Female

DRUGS (29)
  1. ESTRADIOL. [Concomitant]
     Active Substance: ESTRADIOL
  2. PANCREATIN [Concomitant]
     Active Substance: PANCRELIPASE
  3. ENBREL [Suspect]
     Active Substance: ETANERCEPT
     Indication: RHEUMATOID ARTHRITIS
     Dosage: 50 MG, QWK
     Route: 058
     Dates: start: 201010
  4. DEHYDROEPIANDROSTERONE [Concomitant]
     Active Substance: PRASTERONE
  5. MORPHINE [Concomitant]
     Active Substance: MORPHINE
  6. TEMAZEPAM. [Concomitant]
     Active Substance: TEMAZEPAM
  7. GUAIFENESIN. [Concomitant]
     Active Substance: GUAIFENESIN
  8. ZINC [Concomitant]
     Active Substance: ZINC\ZINC CHLORIDE
  9. CHLORZOXAZONE. [Concomitant]
     Active Substance: CHLORZOXAZONE
  10. FOLIC ACID. [Concomitant]
     Active Substance: FOLIC ACID
  11. GABAPENTIN. [Concomitant]
     Active Substance: GABAPENTIN
  12. ZAFIRLUKAST. [Concomitant]
     Active Substance: ZAFIRLUKAST
  13. POTASSIUM [Concomitant]
     Active Substance: POTASSIUM
  14. BISOPROLOL [Concomitant]
     Active Substance: BISOPROLOL
  15. VITAMIN D3 [Concomitant]
     Active Substance: CHOLECALCIFEROL
  16. MAGNESIUM [Concomitant]
     Active Substance: MAGNESIUM
  17. TRAZODONE [Concomitant]
     Active Substance: TRAZODONE HYDROCHLORIDE
  18. HYDROCHLOROTHIAZIDE. [Concomitant]
     Active Substance: HYDROCHLOROTHIAZIDE
  19. CALCIUM [Concomitant]
     Active Substance: CALCIUM
  20. METHOTREXATE [Suspect]
     Active Substance: METHOTREXATE
     Indication: RHEUMATOID ARTHRITIS
     Dosage: 20 MG, QWK
     Route: 058
  21. LEVOTHYROXINE. [Concomitant]
     Active Substance: LEVOTHYROXINE
     Dosage: UNK
  22. MILK THISTLE                       /01131701/ [Concomitant]
  23. CYCLOSPORINE. [Concomitant]
     Active Substance: CYCLOSPORINE
  24. PILOCARPINE. [Concomitant]
     Active Substance: PILOCARPINE
  25. INSULIN DETEMIR [Concomitant]
     Active Substance: INSULIN DETEMIR
     Dosage: UNK
  26. METFORMIN [Concomitant]
     Active Substance: METFORMIN HYDROCHLORIDE
  27. FUROSEMIDE. [Concomitant]
     Active Substance: FUROSEMIDE
  28. PROMETHAZINE [Concomitant]
     Active Substance: PROMETHAZINE\PROMETHAZINE HYDROCHLORIDE
  29. OMEPRAZOLE. [Concomitant]
     Active Substance: OMEPRAZOLE

REACTIONS (2)
  - Cellulitis [Recovered/Resolved]
  - Sepsis pasteurella [Recovered/Resolved]
